FAERS Safety Report 5836731-6 (Version None)
Quarter: 2008Q3

REPORT INFORMATION
  Report Type: 
  Country: None (occurrence: None)
  Receive Date: 20080806
  Receipt Date: 20080806
  Transmission Date: 20090109
  Serious: Yes (Death)
  Sender: FDA-Public Use
  Company Number: None

PATIENT
  Sex: Female
  Weight: 78.0187 kg

DRUGS (2)
  1. DIGOXIN [Suspect]
     Indication: ATRIAL FIBRILLATION
     Dosage: 0.125MG DAILY
     Dates: start: 20060731, end: 20080303
  2. DIGOXIN [Suspect]
     Indication: HYPERTENSION
     Dosage: 0.125MG DAILY
     Dates: start: 20060731, end: 20080303

REACTIONS (5)
  - BLOOD PRESSURE SYSTOLIC INCREASED [None]
  - CARDIAC FAILURE CONGESTIVE [None]
  - HEART RATE DECREASED [None]
  - OEDEMA [None]
  - WEIGHT INCREASED [None]
